FAERS Safety Report 18234219 (Version 4)
Quarter: 2020Q4

REPORT INFORMATION
  Report Type: Report from Study
  Country: BE (occurrence: BE)
  Receive Date: 20200904
  Receipt Date: 20201005
  Transmission Date: 20210113
  Serious: Yes (Hospitalization, Other)
  Sender: FDA-Public Use
  Company Number: BE-BRISTOL-MYERS SQUIBB COMPANY-BMS-2020-063353

PATIENT
  Age: 70 Year
  Sex: Male

DRUGS (5)
  1. NIVOLUMAB [Suspect]
     Active Substance: NIVOLUMAB
     Indication: RENAL CELL CARCINOMA
     Dosage: UNK, Q3WK
     Route: 065
     Dates: start: 20200731
  2. NIVOLUMAB [Suspect]
     Active Substance: NIVOLUMAB
     Dosage: UNK, Q3WK
     Route: 065
  3. IPILIMUMAB [Suspect]
     Active Substance: IPILIMUMAB
     Indication: RENAL CELL CARCINOMA
     Dosage: UNK, Q3WK
     Route: 065
     Dates: start: 20200731
  4. IPILIMUMAB [Suspect]
     Active Substance: IPILIMUMAB
     Dosage: UNK, Q3WK
     Route: 065
  5. LYSANXIA [Concomitant]
     Active Substance: PRAZEPAM
     Indication: PRODUCT USED FOR UNKNOWN INDICATION
     Dosage: UNK; PRN
     Route: 065

REACTIONS (17)
  - Diarrhoea [Recovered/Resolved]
  - Fatigue [Unknown]
  - Decreased appetite [Unknown]
  - Dyspepsia [Unknown]
  - Abdominal pain [Recovering/Resolving]
  - Sleep disorder [Unknown]
  - Pruritus [Unknown]
  - Pain [Unknown]
  - Back pain [Unknown]
  - Weight decreased [Unknown]
  - Malaise [Unknown]
  - Crying [Unknown]
  - Constipation [Unknown]
  - Asthenia [Unknown]
  - Depressed mood [Unknown]
  - Confusional state [Unknown]
  - Speech disorder [Unknown]

NARRATIVE: CASE EVENT DATE: 20200731
